FAERS Safety Report 19495096 (Version 3)
Quarter: 2021Q3

REPORT INFORMATION
  Report Type: Spontaneous
  Country: JP (occurrence: JP)
  Receive Date: 20210706
  Receipt Date: 20210916
  Transmission Date: 20211014
  Serious: Yes (Death, Hospitalization)
  Sender: FDA-Public Use
  Company Number: JP-UCBSA-2021031567

PATIENT
  Age: 64 Year
  Sex: Female
  Weight: 40.6 kg

DRUGS (8)
  1. LEVODOPA [Suspect]
     Active Substance: LEVODOPA
     Dosage: 400 MILLIGRAM/DAY
  2. LEVODOPA [Suspect]
     Active Substance: LEVODOPA
     Indication: PRODUCT USED FOR UNKNOWN INDICATION
     Dosage: UNKNOWN DOSE
     Route: 048
     Dates: start: 2012
  3. LEVODOPA [Suspect]
     Active Substance: LEVODOPA
     Dosage: 900 MILLIGRAM DAILY IN 9 DIVIDED DOSES
     Route: 048
  4. ENTACAPONE. [Suspect]
     Active Substance: ENTACAPONE
     Dosage: 900 MILLIGRAM DAILY IN 9 DIVIDED DOSES
     Route: 048
  5. LEVODOPA [Suspect]
     Active Substance: LEVODOPA
     Dosage: 200 MILLIGRAM
  6. NEUPRO [Suspect]
     Active Substance: ROTIGOTINE
     Indication: PARKINSON^S DISEASE
     Dosage: STRENGTH: 1MG/24 HOURS
     Route: 062
  7. LEVODOPA [Suspect]
     Active Substance: LEVODOPA
     Dosage: 700 MILLIGRAM DAILY IN 7 DIVIDED DOSES
     Route: 048
     Dates: start: 201801
  8. ENTACAPONE. [Suspect]
     Active Substance: ENTACAPONE
     Indication: PRODUCT USED FOR UNKNOWN INDICATION
     Dosage: 200 MILLIGRAM

REACTIONS (3)
  - Malnutrition [Fatal]
  - Dropped head syndrome [Unknown]
  - Respiratory failure [Fatal]
